FAERS Safety Report 19376588 (Version 1)
Quarter: 2021Q2

REPORT INFORMATION
  Report Type: Spontaneous
  Country: TW (occurrence: TW)
  Receive Date: 20210604
  Receipt Date: 20210604
  Transmission Date: 20210717
  Serious: Yes (Hospitalization)
  Sender: FDA-Public Use
  Company Number: TW-MYLANLABS-2021M1032376

PATIENT
  Age: 57 Year
  Sex: Female

DRUGS (6)
  1. DOXORUBICIN [Suspect]
     Active Substance: DOXORUBICIN
     Indication: ADENOCARCINOMA OF COLON
  2. TAMOXIFEN [Suspect]
     Active Substance: TAMOXIFEN
     Indication: BREAST CANCER METASTATIC
     Dosage: AS MAINTENANCE THERAPY; VAGINAL BLEEDING WAS NOTED AFTER 30 MONTHS FROM RECEIVING TAMOXIFEN
     Route: 065
     Dates: start: 201705
  3. CYCLOPHOSPHAMIDE. [Suspect]
     Active Substance: CYCLOPHOSPHAMIDE
     Indication: BREAST CANCER METASTATIC
     Dosage: FOUR COURSES AS ADJUVANT CHEMOTHERAPY
     Route: 065
  4. FLUOROURACIL. [Suspect]
     Active Substance: FLUOROURACIL
     Indication: BREAST CANCER METASTATIC
     Dosage: FOUR COURSES AS ADJUVANT CHEMOTHERAPY
     Route: 065
  5. DOXORUBICIN [Suspect]
     Active Substance: DOXORUBICIN
     Indication: BREAST CANCER METASTATIC
     Dosage: FOUR COURSES AS ADJUVANT CHEMOTHERAPY
     Route: 065
  6. TAXOTERE [Suspect]
     Active Substance: DOCETAXEL
     Indication: BREAST CANCER METASTATIC
     Dosage: 4 COURSES
     Route: 065

REACTIONS (4)
  - Invasive lobular breast carcinoma [Unknown]
  - Metastases to uterus [Unknown]
  - Metastases to ovary [Unknown]
  - Metastases to fallopian tube [Unknown]
